FAERS Safety Report 8025451-8 (Version None)
Quarter: 2012Q1

REPORT INFORMATION
  Report Type: 
  Country: None (occurrence: None)
  Receive Date: 20120105
  Receipt Date: 20120102
  Transmission Date: 20120608
  Serious: Yes (Other)
  Sender: FDA-Public Use
  Company Number: PHHY2012FR000708

PATIENT
  Sex: Female

DRUGS (1)
  1. VOLTAREN [Suspect]
     Indication: BACK PAIN
     Dosage: 100 MG, 1 SINGLE DOSE
     Route: 048
     Dates: start: 20110911

REACTIONS (6)
  - CHEST PAIN [None]
  - ABDOMINAL PAIN [None]
  - URTICARIA [None]
  - ERYTHROSIS [None]
  - VOMITING [None]
  - MALAISE [None]
